FAERS Safety Report 25446117 (Version 1)
Quarter: 2025Q2

REPORT INFORMATION
  Report Type: Spontaneous
  Country: US (occurrence: US)
  Receive Date: 20250617
  Receipt Date: 20250617
  Transmission Date: 20250717
  Serious: Yes (Hospitalization)
  Sender: PFIZER
  Company Number: US-PFIZER INC-PV202500070713

PATIENT
  Age: 66 Year
  Sex: Male

DRUGS (8)
  1. AXITINIB [Suspect]
     Active Substance: AXITINIB
     Indication: Clear cell renal cell carcinoma
     Dosage: 5 MG, 2X/DAY
     Dates: start: 202201, end: 202203
  2. AXITINIB [Suspect]
     Active Substance: AXITINIB
     Dosage: 5 MG, 2X/DAY
     Dates: start: 202204, end: 202205
  3. PEMBROLIZUMAB [Suspect]
     Active Substance: PEMBROLIZUMAB
     Indication: Clear cell renal cell carcinoma
     Dosage: 200 MG, EVERY 21 DAYS
     Route: 042
     Dates: start: 202201, end: 202203
  4. PREDNISONE [Concomitant]
     Active Substance: PREDNISONE
     Indication: Clear cell renal cell carcinoma
     Dosage: 60 MG, DAILY
     Route: 048
     Dates: start: 202203, end: 2022
  5. PREDNISONE [Concomitant]
     Active Substance: PREDNISONE
     Dosage: 10 MG, DAILY
     Route: 048
     Dates: start: 202204, end: 202205
  6. PREDNISONE [Concomitant]
     Active Substance: PREDNISONE
     Dosage: 20 MG, DAILY
     Route: 048
     Dates: start: 202205, end: 202205
  7. PREDNISONE [Concomitant]
     Active Substance: PREDNISONE
     Dosage: 60 MG, DAILY
     Route: 048
     Dates: start: 202205, end: 2022
  8. PREDNISONE [Concomitant]
     Active Substance: PREDNISONE
     Dosage: 40 MG, DAILY (WITH A WEEKLY TAPER)
     Route: 048
     Dates: start: 2022

REACTIONS (1)
  - Oral lichenoid reaction [Recovering/Resolving]

NARRATIVE: CASE EVENT DATE: 20220301
